FAERS Safety Report 6495340-9 (Version None)
Quarter: 2009Q4

REPORT INFORMATION
  Report Type: 
  Country: None (occurrence: None)
  Receive Date: 20091214
  Receipt Date: 20090604
  Transmission Date: 20100525
  Serious: No
  Sender: FDA-Public Use
  Company Number: US-BRISTOL-MYERS SQUIBB COMPANY-14649586

PATIENT
  Age: 29 Year
  Sex: Male
  Weight: 100 kg

DRUGS (5)
  1. ABILIFY [Suspect]
     Indication: BIPOLAR DISORDER
     Dosage: TAKEN FOR 3MNTHS DECRESED TO 5MG;
  2. REMERON [Suspect]
     Indication: BIPOLAR DISORDER
  3. COGENTIN [Suspect]
  4. VISTARIL [Concomitant]
  5. LITHIUM [Concomitant]

REACTIONS (2)
  - CHOKING SENSATION [None]
  - DYSPHAGIA [None]
